FAERS Safety Report 8125181-8 (Version None)
Quarter: 2012Q1

REPORT INFORMATION
  Report Type: 
  Country: None (occurrence: None)
  Receive Date: 20120209
  Receipt Date: 20120131
  Transmission Date: 20120608
  Serious: Yes (Hospitalization, Disabling)
  Sender: FDA-Public Use
  Company Number: US-ASTRAZENECA-2011SE71939

PATIENT
  Age: 28105 Day
  Sex: Female

DRUGS (6)
  1. PLAVIX [Suspect]
     Indication: CORONARY ARTERY DISEASE
     Route: 048
     Dates: start: 20111004, end: 20111121
  2. FUROSEMIDE [Concomitant]
     Indication: DIURETIC THERAPY
     Route: 048
  3. ASPIRIN [Concomitant]
     Route: 048
  4. BISOPROLOL FUMARATE [Concomitant]
     Indication: ANGIOPATHY
     Route: 048
  5. RAMIPRIL [Concomitant]
     Indication: PROPHYLAXIS
     Route: 048
  6. SIMVASTATIN [Concomitant]
     Indication: HYPERCHOLESTEROLAEMIA
     Route: 048

REACTIONS (1)
  - FALL [None]
